FAERS Safety Report 24294135 (Version 2)
Quarter: 2025Q3

REPORT INFORMATION
  Report Type: Spontaneous
  Country: US (occurrence: US)
  Receive Date: 20240906
  Receipt Date: 20250905
  Transmission Date: 20251020
  Serious: No
  Sender: DOMPE FARMACEUTICI
  Company Number: US-FARMAPROD-202308-202405-1882

PATIENT
  Sex: Female

DRUGS (12)
  1. OXERVATE [Suspect]
     Active Substance: CENEGERMIN-BKBJ
     Indication: Neurotrophic keratopathy
     Route: 047
     Dates: start: 20240502
  2. OXERVATE [Suspect]
     Active Substance: CENEGERMIN-BKBJ
  3. MAGNESIUM [Concomitant]
     Active Substance: MAGNESIUM
  4. VITAMIN C [Concomitant]
     Active Substance: ASCORBIC ACID
  5. VITAMIN B12 [Concomitant]
     Active Substance: CYANOCOBALAMIN
  6. VITAMIN D3 [Concomitant]
     Active Substance: CHOLECALCIFEROL
  7. LUMIFY [Concomitant]
     Active Substance: BRIMONIDINE TARTRATE
  8. OCUSOFT [Concomitant]
  9. SYSTANE GEL [Concomitant]
  10. REFRESH TEARS [Concomitant]
     Active Substance: CARBOXYMETHYLCELLULOSE SODIUM
  11. RESTASIS [Concomitant]
     Active Substance: CYCLOSPORINE
  12. RINVOQ [Concomitant]
     Active Substance: UPADACITINIB

REACTIONS (1)
  - Wrong technique in product usage process [Recovered/Resolved]
